FAERS Safety Report 9886633 (Version 1)
Quarter: 2014Q1

REPORT INFORMATION
  Report Type: Spontaneous
  Country: CA (occurrence: CA)
  Receive Date: 20140210
  Receipt Date: 20140210
  Transmission Date: 20141002
  Serious: Yes (Life-Threatening)
  Sender: FDA-Public Use
  Company Number: CHPA2014CA002449

PATIENT
  Sex: Female

DRUGS (6)
  1. BUCKLEY^S UNKNOWN [Suspect]
     Indication: INFLUENZA
  2. BUCKLEY^S UNKNOWN [Suspect]
     Indication: COUGH
  3. BENYLIN [Suspect]
     Indication: INFLUENZA
  4. BENYLIN [Suspect]
     Indication: COUGH
  5. TYLENOL [Suspect]
     Indication: INFLUENZA
  6. TYLENOL [Suspect]
     Indication: COUGH

REACTIONS (3)
  - Influenza [Unknown]
  - Cough [Unknown]
  - Drug ineffective [Unknown]
